FAERS Safety Report 6254771-2 (Version None)
Quarter: 2009Q3

REPORT INFORMATION
  Report Type: 
  Country: None (occurrence: None)
  Receive Date: 20090702
  Receipt Date: 20090622
  Transmission Date: 20100115
  Serious: Yes (Hospitalization, Other)
  Sender: FDA-Public Use
  Company Number: ES-ELI_LILLY_AND_COMPANY-ES200906005579

PATIENT
  Age: 67 Year
  Sex: Female

DRUGS (7)
  1. FORTEO [Suspect]
     Indication: OSTEOPOROSIS
     Dosage: 20 UG, UNKNOWN
     Route: 058
     Dates: start: 20080601
  2. SINTROM [Concomitant]
     Dosage: UNK, UNKNOWN
     Route: 065
  3. AEROSOL SPITZNER [Concomitant]
     Dosage: UNK, UNKNOWN
     Route: 065
  4. ANTIHYPERTENSIVES [Concomitant]
     Indication: HYPERTENSION
     Dosage: UNK, UNKNOWN
     Route: 065
  5. VENTOLIN [Concomitant]
     Dosage: UNK, UNKNOWN
     Route: 065
  6. DIURETICS [Concomitant]
     Indication: MICTURITION DISORDER
     Dosage: UNK, UNKNOWN
     Route: 065
  7. ANALGESICS [Concomitant]
     Indication: PAIN
     Dosage: UNK, UNKNOWN
     Route: 065

REACTIONS (7)
  - BILIARY COLIC [None]
  - CHOLELITHIASIS [None]
  - DIARRHOEA [None]
  - FEELING ABNORMAL [None]
  - HYPOPHAGIA [None]
  - INFECTION [None]
  - PAIN [None]
